FAERS Safety Report 8575257-6 (Version None)
Quarter: 2012Q3

REPORT INFORMATION
  Report Type: 
  Country: None (occurrence: None)
  Receive Date: 20120807
  Receipt Date: 20120723
  Transmission Date: 20120928
  Serious: No
  Sender: FDA-Public Use
  Company Number: US-009507513-1207USA009201

PATIENT

DRUGS (3)
  1. VICTRELIS [Suspect]
     Indication: HEPATITIS C
     Dosage: 4 CAPSULES, TID
     Route: 048
     Dates: start: 20120102
  2. PEG-INTRON [Suspect]
     Dosage: 150 MICROGRAM, UNK
     Dates: start: 20111227
  3. RIBASPHERE [Suspect]

REACTIONS (4)
  - VOMITING [None]
  - ANXIETY [None]
  - NAUSEA [None]
  - ALOPECIA [None]
